FAERS Safety Report 6723166-7 (Version None)
Quarter: 2010Q2

REPORT INFORMATION
  Report Type: 
  Country: None (occurrence: None)
  Receive Date: 20100512
  Receipt Date: 20100512
  Transmission Date: 20101027
  Serious: Yes (Other)
  Sender: FDA-Public Use
  Company Number: None

PATIENT
  Age: 27 Year
  Sex: Female

DRUGS (1)
  1. KY WARMING LIQUID JOHNSON + JOHNSON [Suspect]
     Dates: start: 20100214, end: 20100214

REACTIONS (3)
  - BLISTER [None]
  - NO THERAPEUTIC RESPONSE [None]
  - VULVOVAGINAL DISCOMFORT [None]
